FAERS Safety Report 14170963 (Version 1)
Quarter: 2017Q4

REPORT INFORMATION
  Report Type: Spontaneous
  Country: US (occurrence: US)
  Receive Date: 20171108
  Receipt Date: 20171108
  Transmission Date: 20180321
  Serious: No
  Sender: FDA-Public Use
  Company Number: US-ASTRAZENECA-2017SF11977

PATIENT

DRUGS (1)
  1. FASLODEX [Suspect]
     Active Substance: FULVESTRANT
     Dosage: ONCE/SINGLE ADMINISTRATION
     Route: 030

REACTIONS (5)
  - Decreased appetite [Unknown]
  - Pyrexia [Unknown]
  - Influenza like illness [Unknown]
  - Nausea [Unknown]
  - Diarrhoea [Unknown]
